FAERS Safety Report 24301715 (Version 1)
Quarter: 2024Q3

REPORT INFORMATION
  Report Type: Report from Study
  Country: ZA (occurrence: ZA)
  Receive Date: 20240910
  Receipt Date: 20240910
  Transmission Date: 20241016
  Serious: Yes (Death)
  Sender: ABBVIE
  Company Number: ZA-ABBOTT-2024A-1387640

PATIENT
  Age: 55 Year
  Sex: Female

DRUGS (5)
  1. CREON [Suspect]
     Active Substance: PANCRELIPASE AMYLASE\PANCRELIPASE LIPASE\PANCRELIPASE PROTEASE
     Indication: Pancreatic failure
     Dosage: 300 MG ONE CAPSULE THREE TIMES A DAY,?CREON 25000
     Route: 048
  2. Dicloflam [Concomitant]
     Indication: Product used for unknown indication
     Dosage: 50 MG ONE DISSOLVED IN WATER THREE TIMES A DAY,?DICLOFLAM B-CURRANT
     Route: 048
  3. Captero [Concomitant]
     Indication: Neoplasm malignant
     Dosage: 150 MG TWO TABLETS DAILY
     Route: 048
  4. Captero [Concomitant]
     Indication: Neoplasm malignant
     Dosage: 500 MG FOUR TABLETS DAILY
     Route: 048
  5. CIPLA ONDANSETRON [Concomitant]
     Indication: Product used for unknown indication
     Dosage: 4 MG AS PRESCRIBED
     Route: 048

REACTIONS (1)
  - Death [Fatal]
